FAERS Safety Report 7793526-4 (Version None)
Quarter: 2011Q4

REPORT INFORMATION
  Report Type: 
  Country: None (occurrence: None)
  Receive Date: 20111003
  Receipt Date: 20110922
  Transmission Date: 20120403
  Serious: Yes (Other)
  Sender: FDA-Public Use
  Company Number: US-BAYER-2011-009717

PATIENT
  Age: 29 Year
  Sex: Female
  Weight: 126.98 kg

DRUGS (3)
  1. AZITHROMYCIN [Concomitant]
     Dosage: 250 MG, UNK
     Route: 048
     Dates: start: 20081204
  2. PHENTERMINE [Concomitant]
     Indication: WEIGHT DECREASED
     Dosage: UNK
     Route: 048
     Dates: start: 20080110, end: 20090701
  3. YAZ [Suspect]
     Indication: CONTRACEPTION
     Dosage: UNK
     Dates: start: 20080424, end: 20090507

REACTIONS (8)
  - CHOLECYSTITIS CHRONIC [None]
  - ABDOMINAL PAIN [None]
  - FEAR [None]
  - DYSPEPSIA [None]
  - ANXIETY [None]
  - EMOTIONAL DISTRESS [None]
  - GALLBLADDER DISORDER [None]
  - PAIN [None]
